FAERS Safety Report 22183289 (Version 1)
Quarter: 2023Q2

REPORT INFORMATION
  Report Type: Spontaneous
  Country: US (occurrence: US)
  Receive Date: 20230406
  Receipt Date: 20230406
  Transmission Date: 20230721
  Serious: No
  Sender: FDA-Public Use
  Company Number: US-Evolus, Inc.-2022EV000326

PATIENT
  Sex: Female

DRUGS (1)
  1. JEUVEAU [Suspect]
     Active Substance: PRABOTULINUMTOXINA-XVFS
     Indication: Skin wrinkling
     Dosage: 1.5 UNITS PER SIDE, (TOTAL OF 3 UNITS)
     Dates: start: 20221007, end: 20221007

REACTIONS (2)
  - Injection site swelling [Not Recovered/Not Resolved]
  - Off label use [Unknown]
